FAERS Safety Report 10546309 (Version 1)
Quarter: 2014Q4

REPORT INFORMATION
  Report Type: Spontaneous
  Country: US (occurrence: US)
  Receive Date: 20141027
  Receipt Date: 20141027
  Transmission Date: 20150529
  Serious: No
  Sender: FDA-Public Use
  Company Number: US-ABBVIE-13P-163-1176215-00

PATIENT
  Sex: Female

DRUGS (1)
  1. LUPRON [Suspect]
     Active Substance: LEUPROLIDE ACETATE
     Indication: AMENORRHOEA
     Dosage: 3-MONTH LUPRON

REACTIONS (2)
  - Vaginal haemorrhage [Unknown]
  - Therapeutic response delayed [Unknown]
